FAERS Safety Report 25524259 (Version 1)
Quarter: 2025Q3

REPORT INFORMATION
  Report Type: Spontaneous
  Country: US (occurrence: None)
  Receive Date: 20250703
  Receipt Date: 20250703
  Transmission Date: 20251021
  Serious: Yes (Other)
  Sender: FDA-CTU
  Company Number: None

PATIENT
  Age: 31 Year
  Sex: Male

DRUGS (1)
  1. FASENRA [Suspect]
     Active Substance: BENRALIZUMAB
     Indication: Eosinophilic granulomatosis with polyangiitis
     Dosage: FREQUENCY : MONTHLY;?
     Route: 058
     Dates: start: 20250328

REACTIONS (2)
  - Condition aggravated [None]
  - Drug ineffective [None]

NARRATIVE: CASE EVENT DATE: 20250703
